FAERS Safety Report 12631122 (Version 2)
Quarter: 2016Q3

REPORT INFORMATION
  Report Type: Spontaneous
  Country: US (occurrence: US)
  Receive Date: 20160808
  Receipt Date: 20160808
  Transmission Date: 20161109
  Serious: No
  Sender: FDA-Public Use
  Company Number: US-BEH-2015052350

PATIENT
  Sex: Male
  Weight: 81 kg

DRUGS (21)
  1. BETAMETHASONE. [Concomitant]
     Active Substance: BETAMETHASONE
  2. ALBUTEROL. [Concomitant]
     Active Substance: ALBUTEROL
  3. CEFUROXMINE [Concomitant]
  4. VESICARE [Concomitant]
     Active Substance: SOLIFENACIN SUCCINATE
  5. DIPHENHYDRAMINE. [Concomitant]
     Active Substance: DIPHENHYDRAMINE
     Indication: ANAPHYLACTIC REACTION
  6. DEXAMETHASONE. [Concomitant]
     Active Substance: DEXAMETHASONE
  7. METHOCARBAMOL. [Concomitant]
     Active Substance: METHOCARBAMOL
  8. BL CENTURY W/ LUTEIN [Concomitant]
  9. MULTIVITAMIN [Concomitant]
     Active Substance: VITAMINS
  10. EPIPEN [Concomitant]
     Active Substance: EPINEPHRINE
     Indication: ANAPHYLACTIC REACTION
  11. HIZENTRA [Suspect]
     Active Substance: HUMAN IMMUNOGLOBULIN G
     Indication: IMMUNODEFICIENCY COMMON VARIABLE
     Route: 058
  12. NASONEX [Concomitant]
     Active Substance: MOMETASONE FUROATE
  13. PRILOSEC [Concomitant]
     Active Substance: OMEPRAZOLE MAGNESIUM
  14. DOCUSATE [Concomitant]
     Active Substance: DOCUSATE
  15. PREDNISONE. [Concomitant]
     Active Substance: PREDNISONE
  16. STOOL SOFTNER [Concomitant]
     Active Substance: DOCUSATE SODIUM
  17. LEVOFLOXACIN. [Concomitant]
     Active Substance: LEVOFLOXACIN
  18. HIZENTRA [Suspect]
     Active Substance: HUMAN IMMUNOGLOBULIN G
     Route: 058
  19. FLUCONAZOLE. [Concomitant]
     Active Substance: FLUCONAZOLE
  20. BREO ELLIPTA [Concomitant]
     Active Substance: FLUTICASONE FUROATE\VILANTEROL TRIFENATATE
  21. TAMSULOSIN [Concomitant]
     Active Substance: TAMSULOSIN

REACTIONS (2)
  - Skin disorder [Unknown]
  - Pruritus [Unknown]
